FAERS Safety Report 4482392-0 (Version None)
Quarter: 2004Q4

REPORT INFORMATION
  Report Type: 
  Country: None (occurrence: None)
  Receive Date: 20041022
  Receipt Date: 20040317
  Transmission Date: 20050328
  Serious: No
  Sender: FDA-Public Use
  Company Number: US-BRISTOL-MYERS SQUIBB COMPANY-12535555

PATIENT
  Age: 53 Year
  Sex: Female
  Weight: 48 kg

DRUGS (2)
  1. BUSPAR [Suspect]
     Indication: ANXIETY
     Route: 048
     Dates: end: 20040315
  2. MENEST [Concomitant]

REACTIONS (3)
  - GLOSSODYNIA [None]
  - MUSCULOSKELETAL STIFFNESS [None]
  - TINNITUS [None]
